FAERS Safety Report 21802439 (Version 1)
Quarter: 2022Q4

REPORT INFORMATION
  Report Type: Spontaneous
  Country: FR (occurrence: FR)
  Receive Date: 20221231
  Receipt Date: 20221231
  Transmission Date: 20230113
  Serious: Yes (Other)
  Sender: FDA-Public Use
  Company Number: FR-AFSSAPS-MA20224670

PATIENT
  Age: 63 Year
  Sex: Male

DRUGS (1)
  1. TRAMADOL HYDROCHLORIDE [Suspect]
     Active Substance: TRAMADOL HYDROCHLORIDE
     Indication: Back pain
     Dosage: 3 DOSAGE FORM, ONCE A DAY
     Route: 048
     Dates: start: 202204

REACTIONS (5)
  - Malaise [Unknown]
  - Hot flush [Unknown]
  - Vertigo [Unknown]
  - Tachycardia [Unknown]
  - Choking sensation [Unknown]

NARRATIVE: CASE EVENT DATE: 20220401
